FAERS Safety Report 5512327-0 (Version None)
Quarter: 2007Q4

REPORT INFORMATION
  Report Type: 
  Country: None (occurrence: None)
  Receive Date: 20071108
  Receipt Date: 20071026
  Transmission Date: 20080405
  Serious: No
  Sender: FDA-Public Use
  Company Number: WAES 0710USA06042

PATIENT
  Age: 60 Year
  Sex: Female

DRUGS (1)
  1. INJ IVOMEC PLUS UNK [Suspect]
     Indication: DRUG ADMINISTRATION ERROR
     Dosage: INJ
     Dates: start: 20071026

REACTIONS (2)
  - ACCIDENTAL EXPOSURE [None]
  - INJECTION SITE HAEMORRHAGE [None]
